FAERS Safety Report 9489956 (Version 2)
Quarter: 2013Q3

REPORT INFORMATION
  Report Type: Report from Study
  Country: US (occurrence: US)
  Receive Date: 20130829
  Receipt Date: 20130927
  Transmission Date: 20140515
  Serious: Yes (Other)
  Sender: FDA-Public Use
  Company Number: US-US-EMD SERONO, INC.-7233631

PATIENT
  Sex: Female

DRUGS (1)
  1. REBIF [Suspect]
     Indication: MULTIPLE SCLEROSIS
     Route: 058
     Dates: start: 20090811

REACTIONS (6)
  - Malignant melanoma [Recovered/Resolved]
  - Meniscus injury [Recovered/Resolved]
  - Skin mass [Unknown]
  - Skin disorder [Recovered/Resolved]
  - Dysuria [Unknown]
  - Gait disturbance [Unknown]
